FAERS Safety Report 7277136-3 (Version None)
Quarter: 2011Q1

REPORT INFORMATION
  Report Type: 
  Country: None (occurrence: None)
  Receive Date: 20110202
  Receipt Date: 20110202
  Transmission Date: 20110831
  Serious: Yes (Hospitalization)
  Sender: FDA-Public Use
  Company Number: None

PATIENT
  Sex: Male
  Weight: 86 kg

DRUGS (1)
  1. INVANZ [Suspect]
     Indication: CELLULITIS
     Dosage: INVANZ 1GM IV
     Route: 042

REACTIONS (1)
  - CONVULSION [None]
